FAERS Safety Report 12993878 (Version 1)
Quarter: 2016Q4

REPORT INFORMATION
  Report Type: Spontaneous
  Country: JP (occurrence: JP)
  Receive Date: 20161202
  Receipt Date: 20161202
  Transmission Date: 20170207
  Serious: Yes (Other)
  Sender: FDA-Public Use
  Company Number: JP-PFIZER INC-2016549948

PATIENT

DRUGS (1)
  1. TORISEL [Suspect]
     Active Substance: TEMSIROLIMUS
     Dosage: 15 MG, DAILY
     Route: 042
     Dates: start: 20161115, end: 20161121

REACTIONS (2)
  - Delirium [Unknown]
  - Poriomania [Unknown]

NARRATIVE: CASE EVENT DATE: 20161117
